FAERS Safety Report 23297221 (Version 2)
Quarter: 2025Q4

REPORT INFORMATION
  Report Type: Report from Study
  Country: EU (occurrence: EU)
  Receive Date: 20231214
  Receipt Date: 20251013
  Transmission Date: 20260118
  Serious: No
  Sender: JAZZ
  Company Number: EU-JAZZ PHARMACEUTICALS-2023-FR-024610

PATIENT

DRUGS (1)
  1. EPIDIOLEX [Suspect]
     Active Substance: CANNABIDIOL
     Indication: Lennox-Gastaut syndrome
     Dosage: 12.5 MILLIGRAM/KILOGRAM, QD

REACTIONS (1)
  - Hepatic cytolysis [Recovered/Resolved]

NARRATIVE: CASE EVENT DATE: 20230923
